FAERS Safety Report 11009487 (Version 1)
Quarter: 2015Q2

REPORT INFORMATION
  Report Type: Report from Study
  Country: BR (occurrence: BR)
  Receive Date: 20150410
  Receipt Date: 20150410
  Transmission Date: 20150821
  Serious: Yes (Hospitalization, Other)
  Sender: FDA-Public Use
  Company Number: PHHY2015BR040078

PATIENT
  Age: 72 Year
  Sex: Male
  Weight: 40 kg

DRUGS (1)
  1. EXELON [Suspect]
     Active Substance: RIVASTIGMINE TARTRATE
     Indication: DEMENTIA
     Dosage: 4.5 MG, BID (1 CAPSULE AT 10 AM AND 1CAPSULE AT NIGHT
     Route: 065
     Dates: start: 2014

REACTIONS (5)
  - Pleural effusion [Recovered/Resolved]
  - Frequent bowel movements [Recovered/Resolved]
  - Heart rate increased [Recovered/Resolved]
  - Gastrointestinal infection [Recovered/Resolved]
  - Arrhythmia [Recovered/Resolved]

NARRATIVE: CASE EVENT DATE: 20150205
